FAERS Safety Report 18288080 (Version 3)
Quarter: 2021Q1

REPORT INFORMATION
  Report Type: Other
  Country: CA (occurrence: CA)
  Receive Date: 20200921
  Receipt Date: 20210305
  Transmission Date: 20210419
  Serious: Yes (Other)
  Sender: FDA-Public Use
  Company Number: CA-ASTELLAS-2020US000985

PATIENT
  Age: 81 Year
  Sex: Female

DRUGS (7)
  1. MYRBETRIQ [Suspect]
     Active Substance: MIRABEGRON
     Dosage: 75 MG, UNKNOWN FREQ. (2 X 25 MG TABLETS IN MORNING AND ONE 25 MG TABLET IN EVENING)
     Route: 048
  2. MYRBETRIQ [Suspect]
     Active Substance: MIRABEGRON
     Dosage: 50 MG, ONCE DAILY ( 2 TABLETS OF 25 MG)
     Route: 048
  3. MYRBETRIQ [Suspect]
     Active Substance: MIRABEGRON
     Dosage: 50 MG, ONCE DAILY (ONE TABLET IN THE MORNING)
     Route: 048
  4. MYRBETRIQ [Suspect]
     Active Substance: MIRABEGRON
     Dosage: 50 MG, ONCE DAILY (IN THE MORNING)
     Route: 048
     Dates: start: 20200904, end: 20201001
  5. MYRBETRIQ [Suspect]
     Active Substance: MIRABEGRON
     Indication: HYPERTONIC BLADDER
     Route: 048
  6. ESSIAC [Concomitant]
     Indication: BLOOD DISORDER
     Dosage: UNK UNK, UNKNOWN FREQ.
     Route: 065
  7. MYRBETRIQ [Suspect]
     Active Substance: MIRABEGRON
     Route: 048
     Dates: start: 20201002

REACTIONS (8)
  - Drug ineffective [Unknown]
  - Cystitis [Recovered/Resolved]
  - Intentional overdose [Unknown]
  - Bladder stenosis [Recovered/Resolved]
  - Bladder discomfort [Unknown]
  - Inappropriate schedule of product administration [Unknown]
  - Abdominal rigidity [Unknown]
  - Product availability issue [Unknown]
